FAERS Safety Report 9893649 (Version 3)
Quarter: 2014Q3

REPORT INFORMATION
  Report Type: Report from Study
  Country: NL (occurrence: NL)
  Receive Date: 20140213
  Receipt Date: 20140806
  Transmission Date: 20150326
  Serious: Yes (Other)
  Sender: FDA-Public Use
  Company Number: NL-ABBVIE-12P-114-0892524-00

PATIENT
  Age: 33 Year
  Sex: Female
  Weight: 91 kg

DRUGS (3)
  1. TIBOLON [Concomitant]
     Indication: HOT FLUSH
     Route: 048
     Dates: start: 2008
  2. LUCRIN DEPOT 11.25 MG [Suspect]
     Active Substance: LEUPROLIDE ACETATE
     Indication: ENDOMETRIOSIS
     Route: 058
     Dates: start: 20110712
  3. LUCRIN 3.75 MG [Suspect]
     Active Substance: LEUPROLIDE ACETATE
     Indication: ENDOMETRIOSIS
     Route: 058
     Dates: start: 200803, end: 201106

REACTIONS (6)
  - Hot flush [Not Recovered/Not Resolved]
  - Back pain [Recovered/Resolved]
  - Pyelonephritis [Unknown]
  - Peripheral swelling [Recovered/Resolved]
  - Injection site reaction [Recovered/Resolved]
  - Abdominal distension [Not Recovered/Not Resolved]

NARRATIVE: CASE EVENT DATE: 2008
